FAERS Safety Report 15789024 (Version 2)
Quarter: 2019Q1

REPORT INFORMATION
  Report Type: Spontaneous
  Country: US (occurrence: US)
  Receive Date: 20190104
  Receipt Date: 20190114
  Transmission Date: 20190417
  Serious: Yes (Hospitalization)
  Sender: FDA-Public Use
  Company Number: US-NOVOPROD-640246

PATIENT
  Age: 64 Year
  Sex: Female
  Weight: 71.66 kg

DRUGS (1)
  1. VICTOZA [Suspect]
     Active Substance: LIRAGLUTIDE
     Indication: TYPE 1 DIABETES MELLITUS
     Dosage: UNK UNK, QD
     Route: 058
     Dates: start: 2015, end: 2015

REACTIONS (8)
  - Constipation [Recovered/Resolved]
  - Constipation [Unknown]
  - Product use in unapproved indication [Recovered/Resolved]
  - Rectal haemorrhage [Recovered/Resolved]
  - Vomiting [Unknown]
  - Diabetes mellitus inadequate control [Recovered/Resolved]
  - Rectal haemorrhage [Unknown]
  - Hyperhidrosis [Unknown]

NARRATIVE: CASE EVENT DATE: 2015
